FAERS Safety Report 8814357 (Version 1)
Quarter: 2012Q4

REPORT INFORMATION
  Report Type: Spontaneous
  Country: DE (occurrence: None)
  Receive Date: 20120925
  Receipt Date: 20120925
  Transmission Date: 20130627
  Serious: Yes (Other)
  Sender: FDA-Public Use
  Company Number: AUR-APL-2012-04098

PATIENT
  Age: 27 Year
  Sex: Female
  Weight: 65 kg

DRUGS (5)
  1. LAMOTRIGINE (LAMOTRIGINE) [Suspect]
     Indication: EPILEPSY
     Dosage: 400 MG
     Route: 048
     Dates: start: 20110709, end: 20120321
  2. INFLUENZA VACCINE [Suspect]
     Indication: VACCINATION
     Route: 030
  3. HUMALOG [Concomitant]
  4. FLOSAN (FOLIC ACID) [Concomitant]
  5. NOVORAPID (INSULIN ASPART) [Concomitant]

REACTIONS (3)
  - Exposure during pregnancy [None]
  - Periodontitis [None]
  - Caesarean section [None]
